FAERS Safety Report 4747603-2 (Version None)
Quarter: 2005Q3

REPORT INFORMATION
  Report Type: 
  Country: None (occurrence: None)
  Receive Date: 20050818
  Receipt Date: 20041214
  Transmission Date: 20060218
  Serious: Yes (Other)
  Sender: FDA-Public Use
  Company Number: US-BRISTOL-MYERS SQUIBB COMPANY-12794509

PATIENT
  Sex: Female

DRUGS (1)
  1. TEQUIN [Suspect]
     Dates: start: 20041208, end: 20041208

REACTIONS (1)
  - LOSS OF CONSCIOUSNESS [None]
